FAERS Safety Report 9530751 (Version 1)
Quarter: 2013Q2

REPORT INFORMATION
  Report Type: Spontaneous
  Country: US (occurrence: None)
  Receive Date: 20130418
  Receipt Date: 20130418
  Transmission Date: 20140414
  Serious: Yes (Other)
  Sender: FDA-Public Use
  Company Number: 0907USA03707

PATIENT
  Age: 05 Year
  Sex: Male
  Weight: 17.7 kg

DRUGS (2)
  1. SINGULAIR [Suspect]
     Indication: ASTHMA
     Dosage: 4 MG, QD, ORAL
     Route: 048
  2. FLOVENT (FLUTICASONE PROPIONATE) [Concomitant]

REACTIONS (4)
  - Abdominal pain upper [None]
  - Aggression [None]
  - Headache [None]
  - Psychomotor hyperactivity [None]
